FAERS Safety Report 20709509 (Version 1)
Quarter: 2022Q2

REPORT INFORMATION
  Report Type: Spontaneous
  Country: CN (occurrence: CN)
  Receive Date: 20220414
  Receipt Date: 20220414
  Transmission Date: 20220721
  Serious: Yes (Hospitalization)
  Sender: FDA-Public Use
  Company Number: CN-BAYER-2022A050792

PATIENT
  Age: 78 Year
  Sex: Female

DRUGS (3)
  1. GLUCOBAY [Suspect]
     Active Substance: ACARBOSE
     Indication: Type 2 diabetes mellitus
     Dosage: 100 MG, TID
     Route: 048
     Dates: end: 20220328
  2. CEFTRIAXONE SODIUM [Suspect]
     Active Substance: CEFTRIAXONE SODIUM
     Indication: Anti-infective therapy
     Dosage: 2 G, QD
     Route: 041
     Dates: start: 20220323, end: 20220328
  3. AMMONIUM GLYCYRRHIZATE\CYSTEINE [Suspect]
     Active Substance: AMMONIUM GLYCYRRHIZATE\CYSTEINE
     Indication: Hepatobiliary disorder prophylaxis
     Dosage: 200 ML, QD
     Route: 041
     Dates: start: 20220323, end: 20220328

REACTIONS (4)
  - Hepatic function abnormal [Recovering/Resolving]
  - Febrile infection [Recovering/Resolving]
  - Abdominal distension [Recovering/Resolving]
  - Decreased appetite [Recovering/Resolving]

NARRATIVE: CASE EVENT DATE: 20220326
